FAERS Safety Report 21689880 (Version 1)
Quarter: 2022Q4

REPORT INFORMATION
  Report Type: Spontaneous
  Country: GB (occurrence: GB)
  Receive Date: 20221206
  Receipt Date: 20221206
  Transmission Date: 20230113
  Serious: Yes (Other)
  Sender: FDA-Public Use
  Company Number: GB-MYLANLABS-2022M1135208

PATIENT
  Sex: Female

DRUGS (1)
  1. CLOZARIL [Suspect]
     Active Substance: CLOZAPINE
     Indication: Schizophrenia
     Dosage: UNK (125 MG MANE AND 175 MG NOCTE)
     Route: 048
     Dates: start: 20190227

REACTIONS (4)
  - Psychotic symptom [Unknown]
  - Malaise [Unknown]
  - Abnormal behaviour [Unknown]
  - Off label use [Unknown]
